FAERS Safety Report 9063382 (Version 1)
Quarter: 2013Q1

REPORT INFORMATION
  Report Type: Report from Study
  Country: US (occurrence: US)
  Receive Date: 20130131
  Receipt Date: 20130131
  Transmission Date: 20140127
  Serious: Yes (Other)
  Sender: FDA-Public Use
  Company Number: US-ABBOTT-12P-163-1006659-00

PATIENT
  Age: 58 Year
  Sex: Male

DRUGS (8)
  1. HUMIRA [Suspect]
     Indication: CROHN^S DISEASE
  2. 6MP [Concomitant]
     Indication: CROHN^S DISEASE
  3. COUMADIN [Concomitant]
     Indication: THROMBOSIS
  4. SIMVASTATIN [Concomitant]
     Indication: BLOOD CHOLESTEROL INCREASED
  5. APRISO [Concomitant]
     Indication: GASTRIC DISORDER
  6. APRISO [Concomitant]
     Indication: PROPHYLAXIS
  7. LANSOPRAZOLE [Concomitant]
     Indication: DYSPEPSIA
  8. PREDNISONE [Concomitant]
     Indication: PRODUCT USED FOR UNKNOWN INDICATION

REACTIONS (2)
  - Intestinal resection [Unknown]
  - Drug ineffective [Unknown]
